FAERS Safety Report 6315531-7 (Version None)
Quarter: 2009Q3

REPORT INFORMATION
  Report Type: 
  Country: None (occurrence: None)
  Receive Date: 20090819
  Receipt Date: 20090806
  Transmission Date: 20100115
  Serious: Yes (Hospitalization, Other)
  Sender: FDA-Public Use
  Company Number: CA-PFIZER INC-2005154498

PATIENT
  Age: 75 Year

DRUGS (10)
  1. ZYVOXAM [Suspect]
     Indication: STAPHYLOCOCCAL BACTERAEMIA
     Route: 048
     Dates: start: 20030101
  2. ZYVOXAM [Suspect]
     Indication: DIABETIC FOOT
  3. INSULIN [Concomitant]
     Route: 065
     Dates: start: 20020201
  4. FUROSEMIDE [Concomitant]
     Route: 065
     Dates: start: 20020201
  5. METOLAZONE [Concomitant]
     Route: 065
     Dates: start: 20020201
  6. LEVOTHYROXINE [Concomitant]
     Route: 065
     Dates: start: 20020201
  7. SIDROS [Concomitant]
     Route: 065
     Dates: start: 20020201
  8. GLYCERYL TRINITRATE [Concomitant]
     Route: 065
     Dates: start: 20020201
  9. METOPROLOL [Concomitant]
     Route: 065
     Dates: start: 20020201
  10. ASPIRIN [Concomitant]
     Route: 065
     Dates: start: 20020201

REACTIONS (3)
  - DEHYDRATION [None]
  - PANCYTOPENIA [None]
  - RENAL FAILURE ACUTE [None]
